FAERS Safety Report 7278682-9 (Version None)
Quarter: 2011Q1

REPORT INFORMATION
  Report Type: 
  Country: None (occurrence: None)
  Receive Date: 20110207
  Receipt Date: 20110128
  Transmission Date: 20110831
  Serious: No
  Sender: FDA-Public Use
  Company Number: US-PFIZER INC-2011020792

PATIENT
  Sex: Male
  Weight: 42.63 kg

DRUGS (2)
  1. MELATONIN [Concomitant]
     Dosage: 3 MG, UNK
  2. GENOTROPIN [Suspect]
     Dosage: 3 MG, 6 NIGHTS PER WEEK
     Route: 058

REACTIONS (1)
  - MYALGIA [None]
